FAERS Safety Report 25257607 (Version 2)
Quarter: 2025Q2

REPORT INFORMATION
  Report Type: Report from Study
  Country: CN (occurrence: CN)
  Receive Date: 20250430
  Receipt Date: 20250613
  Transmission Date: 20250717
  Serious: Yes (Hospitalization)
  Sender: BEIGENE
  Company Number: CN-JIANGSUAOSAIKANG-2025ASK002166

PATIENT
  Age: 68 Year
  Weight: 60 kg

DRUGS (26)
  1. TISLELIZUMAB [Suspect]
     Active Substance: TISLELIZUMAB
     Indication: Adenocarcinoma gastric
     Dosage: 200 MILLIGRAM, Q3WK
  2. TISLELIZUMAB [Suspect]
     Active Substance: TISLELIZUMAB
     Dosage: 200 MILLIGRAM, Q3WK
     Route: 041
  3. TISLELIZUMAB [Suspect]
     Active Substance: TISLELIZUMAB
     Dosage: 200 MILLIGRAM, Q3WK
     Route: 041
  4. TISLELIZUMAB [Suspect]
     Active Substance: TISLELIZUMAB
     Dosage: 200 MILLIGRAM, Q3WK
  5. INVESTIGATIONAL PRODUCT [Suspect]
     Active Substance: INVESTIGATIONAL PRODUCT
     Indication: Adenocarcinoma gastric
     Dosage: 6 MILLIGRAM/KILOGRAM, Q3WK
  6. INVESTIGATIONAL PRODUCT [Suspect]
     Active Substance: INVESTIGATIONAL PRODUCT
     Dosage: 6 MILLIGRAM/KILOGRAM, Q3WK
     Route: 041
  7. INVESTIGATIONAL PRODUCT [Suspect]
     Active Substance: INVESTIGATIONAL PRODUCT
     Dosage: 6 MILLIGRAM/KILOGRAM, Q3WK
     Route: 041
  8. INVESTIGATIONAL PRODUCT [Suspect]
     Active Substance: INVESTIGATIONAL PRODUCT
     Dosage: 6 MILLIGRAM/KILOGRAM, Q3WK
  9. OXALIPLATIN [Suspect]
     Active Substance: OXALIPLATIN
     Indication: Adenocarcinoma gastric
     Dosage: 130 MG/M2, EVERY 3 WEEKS
     Route: 041
  10. OXALIPLATIN [Suspect]
     Active Substance: OXALIPLATIN
     Dosage: 130 MG/M2, EVERY 3 WEEKS
  11. CAPECITABINE [Suspect]
     Active Substance: CAPECITABINE
     Indication: Adenocarcinoma gastric
     Dosage: 1000 MG/M2, BID/D1-D14 PER CYCLE
     Route: 048
  12. CAPECITABINE [Suspect]
     Active Substance: CAPECITABINE
     Dosage: 1000 MG/M2, BID/D1-D14 PER CYCLE
  13. HERBALS [Concomitant]
     Active Substance: HERBALS
     Indication: Anaemia
     Dosage: 15 ML, TID
     Route: 048
  14. HERBALS [Concomitant]
     Active Substance: HERBALS
     Dosage: 15 ML, TID
  15. LACTULOSE [Concomitant]
     Active Substance: LACTULOSE
     Indication: Constipation
  16. LACTULOSE [Concomitant]
     Active Substance: LACTULOSE
     Route: 048
  17. LACTULOSE [Concomitant]
     Active Substance: LACTULOSE
     Route: 048
  18. LACTULOSE [Concomitant]
     Active Substance: LACTULOSE
  19. OXYCODONE AND ACETAMINOPHEN [Concomitant]
     Active Substance: ACETAMINOPHEN\OXYCODONE HYDROCHLORIDE
     Indication: Cancer pain
     Dosage: 10 MG, EVERY 12 HOURS
  20. OXYCODONE AND ACETAMINOPHEN [Concomitant]
     Active Substance: ACETAMINOPHEN\OXYCODONE HYDROCHLORIDE
     Dosage: 10 MG, EVERY 12 HOURS
     Route: 048
  21. OXYCODONE AND ACETAMINOPHEN [Concomitant]
     Active Substance: ACETAMINOPHEN\OXYCODONE HYDROCHLORIDE
     Dosage: 10 MG, EVERY 12 HOURS
     Route: 048
  22. OXYCODONE AND ACETAMINOPHEN [Concomitant]
     Active Substance: ACETAMINOPHEN\OXYCODONE HYDROCHLORIDE
     Dosage: 10 MG, EVERY 12 HOURS
  23. MORPHINE HYDROCHLORIDE [Concomitant]
     Active Substance: MORPHINE HYDROCHLORIDE
     Indication: Cancer pain
  24. MORPHINE HYDROCHLORIDE [Concomitant]
     Active Substance: MORPHINE HYDROCHLORIDE
     Route: 048
  25. MORPHINE HYDROCHLORIDE [Concomitant]
     Active Substance: MORPHINE HYDROCHLORIDE
     Route: 048
  26. MORPHINE HYDROCHLORIDE [Concomitant]
     Active Substance: MORPHINE HYDROCHLORIDE

REACTIONS (1)
  - Hepatic function abnormal [Not Recovered/Not Resolved]
